FAERS Safety Report 21616223 (Version 1)
Quarter: 2022Q4

REPORT INFORMATION
  Report Type: Spontaneous
  Country: US (occurrence: US)
  Receive Date: 20221118
  Receipt Date: 20221118
  Transmission Date: 20230112
  Serious: Yes (Other)
  Sender: FDA-Public Use
  Company Number: US-BAYER-2022A150251

PATIENT

DRUGS (2)
  1. AFRIN SEVERE CONGESTION [Suspect]
     Active Substance: OXYMETAZOLINE HYDROCHLORIDE
     Indication: Hypersensitivity
     Dosage: UNK
  2. AFRIN SEVERE CONGESTION [Suspect]
     Active Substance: OXYMETAZOLINE HYDROCHLORIDE
     Indication: Nasopharyngitis

REACTIONS (4)
  - Ventricular tachycardia [None]
  - Myocardial infarction [None]
  - Nasal congestion [None]
  - Incorrect product administration duration [None]

NARRATIVE: CASE EVENT DATE: 20170101
